FAERS Safety Report 8626614 (Version 2)
Quarter: 2014Q1

REPORT INFORMATION
  Report Type: Spontaneous
  Country: US (occurrence: None)
  Receive Date: 20120323
  Receipt Date: 20140306
  Transmission Date: 20141002
  Serious: Yes (Other)
  Sender: FDA-Public Use
  Company Number: 163-21880-11062715

PATIENT
  Age: 58 Year
  Sex: Female

DRUGS (4)
  1. REVLIMID [Suspect]
     Indication: MYELODYSPLASTIC SYNDROME
     Dosage: 10 MG, X21 DAYS, PO
     Route: 048
     Dates: start: 201106, end: 201106
  2. ASPIRIN [Concomitant]
  3. CALTRATE [Concomitant]
  4. MVT[MULTIVITAMINS] [Concomitant]

REACTIONS (5)
  - Swelling face [None]
  - Local swelling [None]
  - Headache [None]
  - Pruritus [None]
  - Haematocrit decreased [None]
